FAERS Safety Report 5282036-4 (Version None)
Quarter: 2007Q1

REPORT INFORMATION
  Report Type: 
  Country: None (occurrence: None)
  Receive Date: 20070330
  Receipt Date: 20070320
  Transmission Date: 20070707
  Serious: Yes (Hospitalization)
  Sender: FDA-Public Use
  Company Number: US-MERCK-0703USA03993

PATIENT
  Age: 70 Year
  Sex: Female

DRUGS (3)
  1. ZETIA [Suspect]
     Indication: BLOOD CHOLESTEROL
     Route: 048
     Dates: start: 20061101
  2. OXYCODONE [Concomitant]
     Indication: PROCEDURAL PAIN
     Route: 065
  3. [THERAPY UNSPECIFIED] [Concomitant]
     Indication: PROCEDURAL PAIN
     Route: 065

REACTIONS (2)
  - ARTHROPATHY [None]
  - MYALGIA [None]
